FAERS Safety Report 9128106 (Version 2)
Quarter: 2013Q2

REPORT INFORMATION
  Report Type: Spontaneous
  Country: US (occurrence: US)
  Receive Date: 20130125
  Receipt Date: 20130429
  Transmission Date: 20140414
  Serious: Yes (Hospitalization)
  Sender: FDA-Public Use
  Company Number: US-BAYER-2013-010236

PATIENT
  Age: 50 Year
  Sex: Female

DRUGS (3)
  1. YAZ [Suspect]
  2. OCELLA [Suspect]
  3. SOLODYN [Concomitant]
     Indication: ACNE
     Dosage: 90 MG, UNK
     Dates: start: 20090423, end: 20101005

REACTIONS (2)
  - Deep vein thrombosis [None]
  - Thrombophlebitis superficial [None]
